FAERS Safety Report 8599927-9 (Version None)
Quarter: 2012Q3

REPORT INFORMATION
  Report Type: 
  Country: None (occurrence: None)
  Receive Date: 20120816
  Receipt Date: 20120612
  Transmission Date: 20120928
  Serious: Yes (Other)
  Sender: FDA-Public Use
  Company Number: US-AMGEN-USASP2011020410

PATIENT
  Sex: Female

DRUGS (2)
  1. LOESTRIN FE 1/20 [Concomitant]
     Route: 048
  2. NPLATE [Suspect]
     Indication: PRODUCT USED FOR UNKNOWN INDICATION
     Dosage: 105 MUG, UNK
     Route: 058
     Dates: start: 20110214, end: 20110322

REACTIONS (1)
  - DRUG INEFFECTIVE [None]
